FAERS Safety Report 23326353 (Version 1)
Quarter: 2023Q4

REPORT INFORMATION
  Report Type: Spontaneous
  Country: IT (occurrence: IT)
  Receive Date: 20231221
  Receipt Date: 20231221
  Transmission Date: 20240109
  Serious: Yes (Death, Other)
  Sender: FDA-Public Use
  Company Number: IT-JNJFOC-20231237047

PATIENT

DRUGS (1)
  1. IMBRUVICA [Suspect]
     Active Substance: IBRUTINIB
     Indication: Marginal zone lymphoma
     Route: 048

REACTIONS (13)
  - Aspergillus infection [Fatal]
  - COVID-19 [Unknown]
  - Diarrhoea [Unknown]
  - Septic shock [Fatal]
  - Atrial fibrillation [Unknown]
  - Rash [Unknown]
  - Neutropenia [Unknown]
  - Anaemia [Unknown]
  - Sepsis [Unknown]
  - Infection [Unknown]
  - Thrombocytopenia [Unknown]
  - Pneumonia [Fatal]
  - Haemorrhage [Unknown]
